FAERS Safety Report 8141234-2 (Version None)
Quarter: 2012Q1

REPORT INFORMATION
  Report Type: 
  Country: None (occurrence: None)
  Receive Date: 20120216
  Receipt Date: 20120209
  Transmission Date: 20120608
  Serious: Yes (Hospitalization, Other)
  Sender: FDA-Public Use
  Company Number: US-BAYER-2011-044791

PATIENT
  Age: 27 Year
  Sex: Female
  Weight: 55.329 kg

DRUGS (3)
  1. MULTI-VITAMIN [Concomitant]
     Route: 048
  2. IBUPROFEN [Concomitant]
     Indication: BACK PAIN
     Dosage: UNK
     Dates: start: 20090601
  3. YAZ [Suspect]
     Indication: CONTRACEPTION
     Dosage: UNK
     Dates: start: 20071126, end: 20090615

REACTIONS (7)
  - EMOTIONAL DISTRESS [None]
  - ANXIETY [None]
  - VENOUS VALVE RUPTURED [None]
  - PELVIC VENOUS THROMBOSIS [None]
  - DEEP VEIN THROMBOSIS [None]
  - PAIN [None]
  - GENERAL PHYSICAL HEALTH DETERIORATION [None]
